FAERS Safety Report 16637691 (Version 1)
Quarter: 2019Q3

REPORT INFORMATION
  Report Type: Spontaneous
  Country: US (occurrence: US)
  Receive Date: 20190726
  Receipt Date: 20190726
  Transmission Date: 20191004
  Serious: No
  Sender: FDA-Public Use
  Company Number: US-PERRIGO-19US000994

PATIENT
  Age: 81 Year
  Sex: Male
  Weight: 72.56 kg

DRUGS (4)
  1. MINOXIDIL. [Suspect]
     Active Substance: MINOXIDIL
     Dosage: LESS THAN 1 ML, BID, FOR 1 TO 2 DAYS
     Route: 061
     Dates: start: 201811, end: 201811
  2. VITAMIN A-D [Suspect]
     Active Substance: ERGOCALCIFEROL\RETINOL
     Indication: SUPPLEMENTATION THERAPY
     Dosage: 1 TABLET, QD
     Route: 048
     Dates: start: 201803, end: 2018
  3. VITAMIN A-D [Suspect]
     Active Substance: ERGOCALCIFEROL\RETINOL
     Dosage: 1 TABLET, QD, PRN
     Route: 048
     Dates: start: 2018
  4. MINOXIDIL. [Suspect]
     Active Substance: MINOXIDIL
     Indication: HYPOTRICHOSIS
     Dosage: 1 ML, BID
     Route: 061
     Dates: start: 201805, end: 2018

REACTIONS (3)
  - Application site rash [Recovered/Resolved]
  - Off label use [Recovered/Resolved]
  - Hypersensitivity [Recovered/Resolved]

NARRATIVE: CASE EVENT DATE: 201805
